FAERS Safety Report 4919817-X (Version None)
Quarter: 2006Q1

REPORT INFORMATION
  Report Type: 
  Country: None (occurrence: None)
  Receive Date: 20060217
  Receipt Date: 20060208
  Transmission Date: 20060701
  Serious: Yes (Other)
  Sender: FDA-Public Use
  Company Number: 2006019096

PATIENT
  Age: 62 Year
  Sex: Female

DRUGS (2)
  1. NIFEDIPINE [Suspect]
     Indication: ILL-DEFINED DISORDER
     Dosage: 10 MG, ORAL
     Route: 048
     Dates: start: 20040201, end: 20040201
  2. DRUG (DRUG) [Concomitant]

REACTIONS (3)
  - LEUKOPENIA [None]
  - RENAL FAILURE [None]
  - THROMBOCYTOPENIA [None]
